FAERS Safety Report 9617204 (Version 3)
Quarter: 2014Q1

REPORT INFORMATION
  Report Type: Report from Study
  Country: US (occurrence: US)
  Receive Date: 20131011
  Receipt Date: 20140117
  Transmission Date: 20141002
  Serious: Yes (Hospitalization)
  Sender: FDA-Public Use
  Company Number: US-DENDREON CORPORATION-2013PROUSA03199

PATIENT
  Age: 65 Year
  Sex: Male
  Weight: 101.13 kg

DRUGS (12)
  1. SIPULEUCEL-T [Suspect]
     Indication: PROSTATE CANCER METASTATIC
     Dosage: 250 ML, SINGLE
     Route: 042
     Dates: start: 20130701, end: 20130701
  2. SIPULEUCEL-T [Suspect]
     Dosage: 250 ML, SINGLE
     Route: 042
     Dates: start: 20130708, end: 20130708
  3. CASODEX [Concomitant]
     Indication: PROSTATE CANCER
     Dosage: 50 MG, QD
  4. HYDROCODONE/APAP [Concomitant]
     Indication: BLADDER PAIN
     Dosage: 7.5/500
  5. HYDROCODONE/APAP [Concomitant]
     Indication: CATHETER PLACEMENT
  6. LUPRON [Concomitant]
     Indication: PROSTATE CANCER
     Dosage: 45 MG, UNK
  7. HUMULIN N [Concomitant]
     Indication: DIABETES MELLITUS
     Dosage: 17 UNITS, TID
  8. AMLODIPINE [Concomitant]
     Indication: HYPERTENSION
     Dosage: 10 MG, QD
  9. SIMVASTATIN [Concomitant]
     Indication: HYPERLIPIDAEMIA
     Dosage: 20 MG, HS
  10. CITALOPRAM [Concomitant]
     Indication: DEPRESSION
     Dosage: 20 MG, QD
  11. ZOLPIDEM [Concomitant]
     Indication: INSOMNIA
     Dosage: 15 MG, HS
  12. CEFTRIAXONE [Concomitant]

REACTIONS (4)
  - Mental status changes [Recovered/Resolved]
  - Staphylococcal bacteraemia [Recovered/Resolved with Sequelae]
  - Osteomyelitis [Recovered/Resolved with Sequelae]
  - Renal failure acute [Recovered/Resolved]
